FAERS Safety Report 7501745-7 (Version None)
Quarter: 2011Q2

REPORT INFORMATION
  Report Type: 
  Country: None (occurrence: None)
  Receive Date: 20110523
  Receipt Date: 20110523
  Transmission Date: 20111010
  Serious: Yes (Other)
  Sender: FDA-Public Use
  Company Number: None

PATIENT
  Age: 61 Year
  Sex: Female
  Weight: 72.5755 kg

DRUGS (2)
  1. FOSAMAX [Suspect]
     Indication: OSTEOPENIA
     Dosage: ONE PILL WEEKLY PO
     Route: 048
     Dates: start: 20010701, end: 20101201
  2. ALENDRONATE SODIUM [Suspect]
     Indication: OSTEOPOROSIS PROPHYLAXIS
     Dosage: ONE PILL WEEKLY PO
     Route: 048

REACTIONS (1)
  - TOOTH RESORPTION [None]
